FAERS Safety Report 24889780 (Version 1)
Quarter: 2025Q1

REPORT INFORMATION
  Report Type: Spontaneous
  Country: US (occurrence: None)
  Receive Date: 20250123
  Receipt Date: 20250123
  Transmission Date: 20250408
  Serious: Yes (Hospitalization)
  Sender: FDA-CTU
  Company Number: None

PATIENT
  Age: 78 Year
  Sex: Male
  Weight: 127 kg

DRUGS (1)
  1. SPIRONOLACTONE [Suspect]
     Active Substance: SPIRONOLACTONE
     Indication: Hypertension
     Dosage: FREQUENCY : DAILY;?
     Route: 048
     Dates: start: 20240930, end: 20241111

REACTIONS (10)
  - Pruritus [None]
  - Dry skin [None]
  - Erythema [None]
  - Hyperglycaemia [None]
  - Rash papular [None]
  - Rash [None]
  - Therapy interrupted [None]
  - Skin abrasion [None]
  - Refusal of treatment by patient [None]
  - Pruritus allergic [None]

NARRATIVE: CASE EVENT DATE: 20241108
